FAERS Safety Report 14291113 (Version 2)
Quarter: 2018Q1

REPORT INFORMATION
  Report Type: Spontaneous
  Country: US (occurrence: US)
  Receive Date: 20171215
  Receipt Date: 20180122
  Transmission Date: 20180509
  Serious: Yes (Death, Hospitalization, Other)
  Sender: FDA-Public Use
  Company Number: US-PFIZER INC-2017534003

PATIENT
  Age: 68 Year
  Sex: Female
  Weight: 52.2 kg

DRUGS (11)
  1. NORMAL SALINE [Concomitant]
     Active Substance: SODIUM CHLORIDE
     Dosage: 1000 ML, UNK
     Route: 042
     Dates: end: 20171205
  2. FEMARA [Concomitant]
     Active Substance: LETROZOLE
     Dosage: 2.5 MG, DAILY
     Route: 048
  3. ZOSYN [Concomitant]
     Active Substance: PIPERACILLIN SODIUM\TAZOBACTAM SODIUM
     Dosage: UNK (3.375 G IN NS 100 ML IVPB)
     Route: 042
  4. FEMARA [Concomitant]
     Active Substance: LETROZOLE
     Indication: HORMONE SUPPRESSION THERAPY
     Dosage: UNK
     Dates: start: 20171108
  5. MORPHINE [Concomitant]
     Active Substance: MORPHINE
     Dosage: 2 MG, UNK
     Route: 042
     Dates: start: 20171205, end: 20171205
  6. NORMAL SALINE [Concomitant]
     Active Substance: SODIUM CHLORIDE
     Dosage: 500 ML, UNK
     Route: 042
     Dates: end: 20171205
  7. ADVIL [Concomitant]
     Active Substance: IBUPROFEN
     Dosage: 200 MG, AS NEEDED
     Route: 048
  8. VIBRAMYCIN [Concomitant]
     Active Substance: DOXYCYCLINE
     Dosage: 100 MG, 2X/DAY
     Route: 048
  9. IBRANCE [Suspect]
     Active Substance: PALBOCICLIB
     Indication: BREAST CANCER METASTATIC
     Dosage: 100 MG, CYCLIC (FOR 21 DAYS FOLLOWED BY 7 DAYS OFF)
     Route: 048
     Dates: start: 20171129, end: 20171205
  10. MOTRIN [Concomitant]
     Active Substance: IBUPROFEN
     Dosage: 200 MG, AS NEEDED
     Route: 048
  11. ZOFRAN [Concomitant]
     Active Substance: ONDANSETRON HYDROCHLORIDE
     Dosage: 4 MG, UNK
     Route: 042
     Dates: start: 20171205, end: 20171205

REACTIONS (12)
  - Necrosis [Unknown]
  - Fatigue [Unknown]
  - Leukaemoid reaction [Unknown]
  - Decreased appetite [Unknown]
  - Gait disturbance [Unknown]
  - Pulmonary mass [Unknown]
  - Troponin increased [Unknown]
  - Sepsis [Fatal]
  - Hyperglycaemia [Unknown]
  - Abdominal pain [Unknown]
  - Asthenia [Unknown]
  - Speech disorder [Unknown]

NARRATIVE: CASE EVENT DATE: 2017
